FAERS Safety Report 7096919-6 (Version None)
Quarter: 2010Q4

REPORT INFORMATION
  Report Type: 
  Country: None (occurrence: None)
  Receive Date: 20101111
  Receipt Date: 20100223
  Transmission Date: 20110411
  Serious: No
  Sender: FDA-Public Use
  Company Number: US-KINGPHARMUSA00001-K201000216

PATIENT
  Sex: Female
  Weight: 97.052 kg

DRUGS (3)
  1. FLECTOR [Suspect]
     Indication: JOINT SPRAIN
     Dosage: 1 PATCH, SINGLE
     Route: 061
     Dates: start: 20100220, end: 20100220
  2. LEVOTHYROXINE [Concomitant]
     Dosage: 88 MCG, QD
  3. ACIPHEX [Concomitant]
     Indication: REFLUX OESOPHAGITIS
     Dosage: 20 MG, QD

REACTIONS (1)
  - MIGRAINE [None]
